FAERS Safety Report 14112672 (Version 5)
Quarter: 2018Q2

REPORT INFORMATION
  Report Type: Report from Study
  Country: None (occurrence: US)
  Receive Date: 20171021
  Receipt Date: 20180410
  Transmission Date: 20180711
  Serious: Yes (Other)
  Sender: FDA-Public Use
  Company Number: US-ABBVIE-17K-163-2134844-00

PATIENT
  Age: 56 Year
  Sex: Female
  Weight: 63.11 kg

DRUGS (10)
  1. LEFLUNOMIDE. [Concomitant]
     Active Substance: LEFLUNOMIDE
     Indication: RHEUMATOID ARTHRITIS
  2. MELOXICAM. [Concomitant]
     Active Substance: MELOXICAM
     Indication: RHEUMATOID ARTHRITIS
  3. VITAMIN D3 [Concomitant]
     Active Substance: CHOLECALCIFEROL
     Indication: VITAMIN SUPPLEMENTATION
  4. BIOTIN [Concomitant]
     Active Substance: BIOTIN
     Indication: VITAMIN SUPPLEMENTATION
  5. SYNTHROID [Concomitant]
     Active Substance: LEVOTHYROXINE SODIUM
     Indication: HYPOTHYROIDISM
  6. OMEPRAZOLE. [Concomitant]
     Active Substance: OMEPRAZOLE
     Indication: PROPHYLAXIS
  7. HUMIRA [Suspect]
     Active Substance: ADALIMUMAB
     Indication: RHEUMATOID ARTHRITIS
     Route: 058
     Dates: start: 20170405, end: 20170517
  8. HUMIRA [Suspect]
     Active Substance: ADALIMUMAB
     Route: 058
     Dates: start: 20180117
  9. HUMIRA [Suspect]
     Active Substance: ADALIMUMAB
     Route: 058
     Dates: start: 20170719, end: 20170830
  10. PREDNISONE. [Concomitant]
     Active Substance: PREDNISONE
     Indication: PRODUCT USED FOR UNKNOWN INDICATION
     Dates: start: 2017

REACTIONS (27)
  - Monoclonal gammopathy [Not Recovered/Not Resolved]
  - Pain [Unknown]
  - Rheumatoid arthritis [Unknown]
  - Iron deficiency anaemia [Not Recovered/Not Resolved]
  - Anxiety [Unknown]
  - Fatigue [Unknown]
  - Headache [Unknown]
  - Injection site swelling [Recovering/Resolving]
  - Gait disturbance [Unknown]
  - Anxiety [Unknown]
  - Gait disturbance [Unknown]
  - Joint stiffness [Unknown]
  - Pyrexia [Unknown]
  - Arthralgia [Unknown]
  - Ear infection [Recovered/Resolved]
  - Furuncle [Not Recovered/Not Resolved]
  - Nausea [Unknown]
  - Sinus disorder [Unknown]
  - Joint swelling [Unknown]
  - Arthralgia [Unknown]
  - Drug ineffective [Unknown]
  - Furuncle [Recovered/Resolved]
  - Joint stiffness [Unknown]
  - Oropharyngeal pain [Unknown]
  - Injection site erythema [Recovering/Resolving]
  - Dyspepsia [Unknown]
  - Finger deformity [Unknown]

NARRATIVE: CASE EVENT DATE: 2017
